FAERS Safety Report 7382562-8 (Version None)
Quarter: 2011Q1

REPORT INFORMATION
  Report Type: 
  Country: None (occurrence: None)
  Receive Date: 20110329
  Receipt Date: 20110309
  Transmission Date: 20110831
  Serious: Yes (Other)
  Sender: FDA-Public Use
  Company Number: US-BAYER-2011-009053

PATIENT
  Sex: Male

DRUGS (14)
  1. DIGOXIN [Concomitant]
     Indication: CARDIAC FAILURE CONGESTIVE
     Dosage: 0.25 MG, QD
     Route: 048
  2. CARVEDILOL [Concomitant]
     Indication: CARDIAC FAILURE CONGESTIVE
     Dosage: 3.125 MG, BID
     Route: 048
  3. VENLAFAXINE HCL [Concomitant]
     Dosage: 150MG 1CAPSULE DAILY
     Route: 048
  4. ACETYLSALICYLIC ACID SRT [Concomitant]
     Dosage: 81 MG, QD
     Route: 048
  5. LISINOPRIL [Concomitant]
     Indication: CARDIAC FAILURE CONGESTIVE
     Dosage: 5 MG, QD
     Route: 048
  6. COUMADIN [Concomitant]
     Indication: ATRIAL FIBRILLATION
     Dosage: 5 MG, QD
     Route: 048
  7. EFFEXOR [Concomitant]
     Indication: BIPOLAR II DISORDER
  8. NITROGLYCERIN [Concomitant]
     Indication: CHEST PAIN
     Dosage: 0.4MG 1EVERY 5 MINUTES UP TO THREE TABLETS
     Route: 060
  9. TRASYLOL [Suspect]
     Indication: PRODUCT USED FOR UNKNOWN INDICATION
     Dosage: UNK
     Route: 042
  10. LOVASTATIN [Concomitant]
     Indication: BLOOD CHOLESTEROL ABNORMAL
     Dosage: 20 MG AT BEDTIME
     Route: 048
  11. LASIX [Concomitant]
     Dosage: 40MG EVERY EVENING
     Route: 048
  12. LASIX [Concomitant]
     Indication: CARDIAC FAILURE CONGESTIVE
     Dosage: 80MG EVERY MORNING
     Route: 048
  13. NIACIN [Concomitant]
     Indication: BLOOD CHOLESTEROL ABNORMAL
     Dosage: 1000MG AT BEDTIME
     Route: 048
  14. GLIPIZIDE [Concomitant]
     Indication: DIABETES MELLITUS
     Dosage: 5MG TWICE DAILY BEFORE MEALS
     Route: 048

REACTIONS (13)
  - RENAL FAILURE [None]
  - ANHEDONIA [None]
  - MULTI-ORGAN FAILURE [None]
  - ANXIETY [None]
  - EMOTIONAL DISTRESS [None]
  - NERVOUSNESS [None]
  - RENAL INJURY [None]
  - DEPRESSION [None]
  - INJURY [None]
  - FEAR OF DEATH [None]
  - UNEVALUABLE EVENT [None]
  - FEAR [None]
  - PAIN [None]
